FAERS Safety Report 17675121 (Version 2)
Quarter: 2021Q1

REPORT INFORMATION
  Report Type: Spontaneous
  Country: PT (occurrence: PT)
  Receive Date: 20200416
  Receipt Date: 20210209
  Transmission Date: 20210419
  Serious: Yes (Hospitalization)
  Sender: FDA-Public Use
  Company Number: PT-MYLANLABS-2020M1038112

PATIENT
  Age: 49 Year
  Sex: Male

DRUGS (4)
  1. PREDNISOLONE. [Concomitant]
     Active Substance: PREDNISOLONE
     Indication: OLIGOARTHRITIS
     Dosage: 5 MILLIGRAM, LATER DISCONTINUED...
     Route: 065
  2. PREDNISOLONE. [Concomitant]
     Active Substance: PREDNISOLONE
     Dosage: 1 MILLIGRAM/KILOGRAM,CONTINUED AT THE...
     Route: 065
  3. COLCHICINE. [Concomitant]
     Active Substance: COLCHICINE
     Indication: OLIGOARTHRITIS
     Dosage: 1 MILLIGRAM
     Route: 065
  4. ALLOPURINOL. [Suspect]
     Active Substance: ALLOPURINOL
     Indication: OLIGOARTHRITIS
     Dosage: 100 MILLIGRAM
     Route: 065

REACTIONS (4)
  - Type IV hypersensitivity reaction [Recovered/Resolved]
  - Atrioventricular block complete [Recovered/Resolved]
  - Drug reaction with eosinophilia and systemic symptoms [Recovered/Resolved]
  - Hypersensitivity myocarditis [Recovered/Resolved]
